FAERS Safety Report 15759536 (Version 1)
Quarter: 2018Q4

REPORT INFORMATION
  Report Type: Spontaneous
  Country: IT (occurrence: IT)
  Receive Date: 20181226
  Receipt Date: 20181226
  Transmission Date: 20190205
  Serious: Yes (Hospitalization, Other)
  Sender: FDA-Public Use
  Company Number: IT-SUN PHARMACEUTICAL INDUSTRIES LTD-2018RR-194566

PATIENT
  Age: 66 Year
  Sex: Male

DRUGS (2)
  1. FLUOROURACIL. [Concomitant]
     Active Substance: FLUOROURACIL
     Indication: ADENOCARCINOMA OF COLON
     Dosage: INTERVAL DOSAGE DEFN: 811
     Route: 042
  2. OXALIPLATIN. [Suspect]
     Active Substance: OXALIPLATIN
     Indication: ADENOCARCINOMA OF COLON
     Dosage: INTERVAL DOSAGE DEFN: 811
     Route: 042

REACTIONS (6)
  - Lethargy [Unknown]
  - Mental status changes [Unknown]
  - Renal tubular acidosis [Recovered/Resolved]
  - Hyperkalaemia [Unknown]
  - Headache [Unknown]
  - Anxiety [Unknown]
